FAERS Safety Report 21028156 (Version 1)
Quarter: 2022Q2

REPORT INFORMATION
  Report Type: Spontaneous
  Country: US (occurrence: None)
  Receive Date: 20220630
  Receipt Date: 20220630
  Transmission Date: 20220720
  Serious: No
  Sender: FDA-Public Use
  Company Number: None

PATIENT
  Sex: Female

DRUGS (1)
  1. HUMIRA [Suspect]
     Active Substance: ADALIMUMAB
     Indication: Inflammatory bowel disease
     Dosage: OTHER QUANTITY : 40MG/0.4ML;?OTHER FREQUENCY : 1 EVERY 14 DAYS;?
     Dates: start: 20210707, end: 20220531

REACTIONS (3)
  - Abdominal pain [None]
  - Psoriasis [None]
  - Therapy cessation [None]
